FAERS Safety Report 17228387 (Version 1)
Quarter: 2020Q1

REPORT INFORMATION
  Report Type: Spontaneous
  Country: PL (occurrence: PL)
  Receive Date: 20200103
  Receipt Date: 20200103
  Transmission Date: 20200409
  Serious: Yes (Life-Threatening)
  Sender: FDA-Public Use
  Company Number: PL-TEVA-2019-PL-1160894

PATIENT
  Age: 71 Year
  Sex: Male

DRUGS (1)
  1. HYDROXYCARBAMID TEVA [Suspect]
     Active Substance: HYDROXYUREA
     Indication: HAEMATOPOIETIC NEOPLASM
     Dosage: 500 MG PER 12 HOURS
     Route: 048

REACTIONS (1)
  - Anaemia [Recovering/Resolving]

NARRATIVE: CASE EVENT DATE: 20190212
